FAERS Safety Report 19635434 (Version 1)
Quarter: 2021Q3

REPORT INFORMATION
  Report Type: Spontaneous
  Country: DE (occurrence: DE)
  Receive Date: 20210730
  Receipt Date: 20210730
  Transmission Date: 20211014
  Serious: Yes (Hospitalization)
  Sender: FDA-Public Use
  Company Number: NVSC2021DE170763

PATIENT
  Age: 52 Year
  Sex: Male

DRUGS (3)
  1. ROPIVACAINE. [Suspect]
     Active Substance: ROPIVACAINE HYDROCHLORIDE
     Indication: ANAESTHESIA
     Dosage: 20 ML SINGLE?DOSE INJECTION (1 ST DOSE)
     Route: 065
  2. ROPIVACAINE. [Suspect]
     Active Substance: ROPIVACAINE HYDROCHLORIDE
     Dosage: 10 ML SINGLE?DOSE INJECTION (2ND DOSE)
     Route: 065
  3. LIDOCAINE. [Suspect]
     Active Substance: LIDOCAINE
     Indication: ANAESTHESIA
     Dosage: 20 ML SINGLE?DOSE INJECTION
     Route: 065

REACTIONS (13)
  - Anxiety [Unknown]
  - Altered state of consciousness [Unknown]
  - Dysphagia [Unknown]
  - Pyramidal tract syndrome [Unknown]
  - Logorrhoea [Unknown]
  - Vomiting [Unknown]
  - Partial seizures [Unknown]
  - Aphasia [Unknown]
  - Aggression [Unknown]
  - Apraxia [Unknown]
  - Facial paralysis [Unknown]
  - Hemiparesis [Unknown]
  - Hypoaesthesia [Unknown]
